FAERS Safety Report 8007336-6 (Version None)
Quarter: 2011Q4

REPORT INFORMATION
  Report Type: 
  Country: None (occurrence: None)
  Receive Date: 20111227
  Receipt Date: 20111216
  Transmission Date: 20120403
  Serious: Yes (Hospitalization)
  Sender: FDA-Public Use
  Company Number: US-PURDUE-USA-2011-0080093

PATIENT
  Sex: Male
  Weight: 85.4 kg

DRUGS (5)
  1. OXYCODONE HCL [Suspect]
     Indication: PAIN
  2. COREG [Concomitant]
  3. OXYCONTIN [Suspect]
     Indication: PAIN
  4. STUDY DRUG [Suspect]
     Indication: PROSTATE CANCER
     Dosage: 1.76 MG/M2, UNK
     Route: 040
     Dates: start: 20111024, end: 20111125
  5. ZOFRAN [Concomitant]
     Indication: PRODUCT USED FOR UNKNOWN INDICATION
     Dosage: UNK
     Dates: end: 20111125

REACTIONS (1)
  - SMALL INTESTINAL OBSTRUCTION [None]
